FAERS Safety Report 20669811 (Version 1)
Quarter: 2022Q2

REPORT INFORMATION
  Report Type: Spontaneous
  Country: FR (occurrence: FR)
  Receive Date: 20220404
  Receipt Date: 20220404
  Transmission Date: 20220721
  Serious: Yes (Other)
  Sender: FDA-Public Use
  Company Number: None

PATIENT
  Age: 68 Year
  Sex: Male

DRUGS (6)
  1. DEXAMETHASONE [Suspect]
     Active Substance: DEXAMETHASONE
     Indication: Waldenstrom^s macroglobulinaemia
     Dosage: 440 MILLIGRAM
     Route: 042
     Dates: start: 20211102, end: 20220105
  2. METHYLPREDNISOLONE [Suspect]
     Active Substance: METHYLPREDNISOLONE
     Indication: Waldenstrom^s macroglobulinaemia
     Dosage: 200 MILLIGRAM
     Route: 042
     Dates: start: 20210906, end: 20211004
  3. BORTEZOMIB [Suspect]
     Active Substance: BORTEZOMIB
     Indication: Waldenstrom^s macroglobulinaemia
     Dosage: 8.92 MILLIGRAM, CYCLE
     Route: 058
     Dates: start: 20211102, end: 20220105
  4. BENDAMUSTINE [Suspect]
     Active Substance: BENDAMUSTINE
     Indication: Waldenstrom^s macroglobulinaemia
     Dosage: 300 MILLIGRAM, CYCLE
     Route: 042
     Dates: start: 20210906, end: 20211230
  5. RITUXIMAB [Suspect]
     Active Substance: RITUXIMAB
     Indication: Waldenstrom^s macroglobulinaemia
     Dosage: 640 MILLIGRAM, CYCLE
     Route: 042
     Dates: start: 20210906, end: 20211229
  6. METHYLPREDNISOLONE [Suspect]
     Active Substance: METHYLPREDNISOLONE
     Indication: Waldenstrom^s macroglobulinaemia
     Dosage: 300 MILLIGRAM
     Route: 048
     Dates: start: 20210907, end: 20211230

REACTIONS (1)
  - Osteonecrosis [Recovered/Resolved]

NARRATIVE: CASE EVENT DATE: 20220101
